FAERS Safety Report 8943296 (Version 4)
Quarter: 2018Q3

REPORT INFORMATION
  Report Type: Report from Study
  Country: BR (occurrence: BR)
  Receive Date: 20121204
  Receipt Date: 20180822
  Transmission Date: 20181010
  Serious: Yes (Other)
  Sender: FDA-Public Use
  Company Number: BR-AMGEN-BRACT2012047089

PATIENT
  Age: 46 Year
  Sex: Female
  Weight: 55 kg

DRUGS (8)
  1. ENBREL [Suspect]
     Active Substance: ETANERCEPT
     Dosage: UNK
     Route: 065
     Dates: start: 201311
  2. LOSARTAN. [Concomitant]
     Active Substance: LOSARTAN
     Indication: HYPERTENSION
     Dosage: UNK
  3. ENALAPRIL [Concomitant]
     Active Substance: ENALAPRIL
     Dosage: 20 MG, 1X/DAY
     Dates: start: 2011
  4. ARAVA [Concomitant]
     Active Substance: LEFLUNOMIDE
     Dosage: 20 MG, ALTERNATE DAY
     Route: 048
  5. ATENOLOL. [Concomitant]
     Active Substance: ATENOLOL
     Dosage: 5 MG, 1X/DAY
     Dates: start: 2012
  6. ENBREL [Suspect]
     Active Substance: ETANERCEPT
     Indication: RHEUMATOID ARTHRITIS
     Dosage: 50 MG, ONCE WEEKLY
     Route: 058
     Dates: start: 200911, end: 201211
  7. ENBREL [Suspect]
     Active Substance: ETANERCEPT
     Dosage: 1 DF, CYCLIC (1 DOSE, 2X/MONTH)
     Route: 058
  8. LEFLUNOMIDE. [Concomitant]
     Active Substance: LEFLUNOMIDE
     Dosage: 20 MG, QD

REACTIONS (14)
  - Thrombocytopenia [Recovered/Resolved]
  - Poor peripheral circulation [Unknown]
  - Injection site pain [Recovered/Resolved]
  - Injection site pruritus [Unknown]
  - Arthralgia [Recovered/Resolved]
  - Product use issue [Unknown]
  - Myalgia [Recovered/Resolved]
  - Post procedural complication [Unknown]
  - Needle issue [Recovered/Resolved]
  - Pyrexia [Recovered/Resolved]
  - Necrosis [Unknown]
  - Osteoarthritis [Recovered/Resolved]
  - Dengue fever [Unknown]
  - Limb injury [Unknown]

NARRATIVE: CASE EVENT DATE: 201111
